FAERS Safety Report 21164109 (Version 1)
Quarter: 2022Q3

REPORT INFORMATION
  Report Type: Spontaneous
  Country: FR (occurrence: FR)
  Receive Date: 20220803
  Receipt Date: 20220803
  Transmission Date: 20221027
  Serious: Yes (Hospitalization)
  Sender: FDA-Public Use
  Company Number: None

PATIENT
  Age: 54 Year
  Sex: Female

DRUGS (2)
  1. PACLITAXEL [Suspect]
     Active Substance: PACLITAXEL
     Indication: Breast cancer
     Dosage: FREQUENCY TIME : 1 WEEKS , DURATION : 3 MONTHS
     Dates: start: 202204, end: 20220701
  2. PEMBROLIZUMAB [Suspect]
     Active Substance: PEMBROLIZUMAB
     Indication: Breast cancer
     Dosage: FREQUENCY TIME : 1 CYCLICAL , DURATION : 127 DAYS
     Dates: start: 20220224, end: 20220701

REACTIONS (1)
  - Type 1 diabetes mellitus [Recovered/Resolved with Sequelae]

NARRATIVE: CASE EVENT DATE: 20220702
